FAERS Safety Report 11319302 (Version 3)
Quarter: 2015Q4

REPORT INFORMATION
  Report Type: Spontaneous
  Country: US (occurrence: US)
  Receive Date: 20150729
  Receipt Date: 20151006
  Transmission Date: 20160304
  Serious: Yes (Hospitalization)
  Sender: FDA-Public Use
  Company Number: US-ACTELION PHARMACEUTICALS US, INC.-A-US2015-120104

PATIENT
  Age: 82 Year
  Sex: Female

DRUGS (4)
  1. OPSUMIT [Suspect]
     Active Substance: MACITENTAN
     Indication: PULMONARY ARTERIAL HYPERTENSION
     Dosage: 10 MG, QD
     Route: 048
     Dates: start: 20140310
  2. VENTAVIS [Suspect]
     Active Substance: ILOPROST
     Indication: PULMONARY ARTERIAL HYPERTENSION
     Dosage: 5 MCG, X6-9/DAY
     Route: 055
     Dates: start: 20121102
  3. TREPROSTINIL DIOLAMIN [Suspect]
     Active Substance: TREPROSTINIL DIOLAMINE
     Indication: PRODUCT USED FOR UNKNOWN INDICATION
     Route: 048
  4. SILDENAFIL. [Concomitant]
     Active Substance: SILDENAFIL

REACTIONS (9)
  - Asthenia [Unknown]
  - Dizziness [Unknown]
  - Arthralgia [Unknown]
  - Diarrhoea [Unknown]
  - Nausea [Unknown]
  - Myalgia [Unknown]
  - Pain in extremity [Unknown]
  - Headache [Unknown]
  - Pallor [Unknown]
